FAERS Safety Report 8691723 (Version 5)
Quarter: 2012Q4

REPORT INFORMATION
  Report Type: 
  Country: US (occurrence: US)
  Receive Date: 20120730
  Receipt Date: 20120928
  Transmission Date: 20130627
  Serious: Yes (Death, Other)
  Sender: FDA-Public Use
  Company Number: US-PFIZER INC-2012181057

PATIENT
  Age: 76 Year
  Sex: Male

DRUGS (2)
  1. REVATIO [Suspect]
     Indication: PULMONARY HYPERTENSION
     Dosage: 20 mg, 3x/day
  2. COUMADINE [Concomitant]
     Dosage: UNK

REACTIONS (3)
  - Head injury [Fatal]
  - Cerebral haemorrhage [Fatal]
  - Cerebrovascular accident [Fatal]
